FAERS Safety Report 4820846-5 (Version None)
Quarter: 2005Q4

REPORT INFORMATION
  Report Type: 
  Country: None (occurrence: None)
  Receive Date: 20051104
  Receipt Date: 20050414
  Transmission Date: 20060501
  Serious: Yes (Hospitalization)
  Sender: FDA-Public Use
  Company Number: US-MERCK-0504USA02948

PATIENT
  Age: 63 Year
  Sex: Female
  Weight: 126 kg

DRUGS (3)
  1. VIOXX [Suspect]
     Indication: OSTEOARTHRITIS
     Route: 048
     Dates: start: 20001201, end: 20010101
  2. ZYRTEC [Concomitant]
     Indication: HYPERSENSITIVITY
     Route: 065
  3. ASPIRIN [Concomitant]
     Indication: OSTEOARTHRITIS
     Route: 065
     Dates: start: 19850101

REACTIONS (5)
  - ARTERIOSCLEROSIS [None]
  - BLOOD CHOLESTEROL INCREASED [None]
  - BLOOD TRIGLYCERIDES INCREASED [None]
  - MYOCARDIAL INFARCTION [None]
  - OEDEMA PERIPHERAL [None]
